FAERS Safety Report 20907877 (Version 1)
Quarter: 2022Q2

REPORT INFORMATION
  Report Type: Spontaneous
  Country: CN (occurrence: CN)
  Receive Date: 20220602
  Receipt Date: 20220602
  Transmission Date: 20220721
  Serious: Yes (Other)
  Sender: FDA-Public Use
  Company Number: CN-PFIZER INC-202200784863

PATIENT
  Age: 67 Year
  Sex: Male
  Weight: 70 kg

DRUGS (2)
  1. AMLODIPINE BESYLATE [Suspect]
     Active Substance: AMLODIPINE BESYLATE
     Indication: Blood pressure increased
     Dosage: 5 MG, 1X/DAY
     Route: 048
     Dates: start: 20140501, end: 20220514
  2. XUE SAI TONG PIAN [Concomitant]
     Indication: Therapeutic procedure
     Dosage: 50 MG, 3X/DAY
     Route: 048
     Dates: start: 20140501, end: 20220530

REACTIONS (3)
  - Skin oedema [Recovered/Resolved]
  - Skin tightness [Recovered/Resolved]
  - Oedema [Recovered/Resolved]

NARRATIVE: CASE EVENT DATE: 20220420
